FAERS Safety Report 20905594 (Version 5)
Quarter: 2023Q2

REPORT INFORMATION
  Report Type: Report from Study
  Country: US (occurrence: US)
  Receive Date: 20220602
  Receipt Date: 20230510
  Transmission Date: 20230722
  Serious: Yes (Hospitalization, Other)
  Sender: FDA-Public Use
  Company Number: US-TAKEDA-2022TUS036893

PATIENT
  Age: 1 Year
  Sex: Male

DRUGS (16)
  1. TEDUGLUTIDE [Suspect]
     Active Substance: TEDUGLUTIDE
     Indication: Malabsorption
     Dosage: 5 MILLIGRAM, QD
     Route: 058
     Dates: start: 20220411
  2. TEDUGLUTIDE [Suspect]
     Active Substance: TEDUGLUTIDE
     Indication: Malabsorption
     Dosage: 5 MILLIGRAM, QD
     Route: 058
     Dates: start: 20220411
  3. TEDUGLUTIDE [Suspect]
     Active Substance: TEDUGLUTIDE
     Indication: Malabsorption
     Dosage: 5 MILLIGRAM, QD
     Route: 058
     Dates: start: 20220411
  4. TEDUGLUTIDE [Suspect]
     Active Substance: TEDUGLUTIDE
     Indication: Malabsorption
     Dosage: 5 MILLIGRAM, QD
     Route: 058
     Dates: start: 20220411
  5. TEDUGLUTIDE [Suspect]
     Active Substance: TEDUGLUTIDE
     Indication: Short-bowel syndrome
     Dosage: 0.52 MILLIGRAM, QD
     Route: 058
     Dates: start: 20220411
  6. TEDUGLUTIDE [Suspect]
     Active Substance: TEDUGLUTIDE
     Indication: Short-bowel syndrome
     Dosage: 0.52 MILLIGRAM, QD
     Route: 058
     Dates: start: 20220411
  7. TEDUGLUTIDE [Suspect]
     Active Substance: TEDUGLUTIDE
     Indication: Short-bowel syndrome
     Dosage: 0.52 MILLIGRAM, QD
     Route: 058
     Dates: start: 20220411
  8. TEDUGLUTIDE [Suspect]
     Active Substance: TEDUGLUTIDE
     Indication: Short-bowel syndrome
     Dosage: 0.52 MILLIGRAM, QD
     Route: 058
     Dates: start: 20220411
  9. TEDUGLUTIDE [Suspect]
     Active Substance: TEDUGLUTIDE
     Dosage: 0.07 MILLILITER, QD
     Route: 058
     Dates: start: 20220414
  10. TEDUGLUTIDE [Suspect]
     Active Substance: TEDUGLUTIDE
     Dosage: 0.07 MILLILITER, QD
     Route: 058
     Dates: start: 20220414
  11. TEDUGLUTIDE [Suspect]
     Active Substance: TEDUGLUTIDE
     Dosage: 0.07 MILLILITER, QD
     Route: 058
     Dates: start: 20220414
  12. TEDUGLUTIDE [Suspect]
     Active Substance: TEDUGLUTIDE
     Dosage: 0.07 MILLILITER, QD
     Route: 058
     Dates: start: 20220414
  13. TEDUGLUTIDE [Suspect]
     Active Substance: TEDUGLUTIDE
     Dosage: 0.52 MILLIGRAM, QD
     Route: 058
     Dates: start: 202204
  14. TEDUGLUTIDE [Suspect]
     Active Substance: TEDUGLUTIDE
     Dosage: 0.52 MILLIGRAM, QD
     Route: 058
     Dates: start: 202204
  15. TEDUGLUTIDE [Suspect]
     Active Substance: TEDUGLUTIDE
     Dosage: 0.52 MILLIGRAM, QD
     Route: 058
     Dates: start: 202204
  16. TEDUGLUTIDE [Suspect]
     Active Substance: TEDUGLUTIDE
     Dosage: 0.52 MILLIGRAM, QD
     Route: 058
     Dates: start: 202204

REACTIONS (6)
  - Vascular device infection [Unknown]
  - Dumping syndrome [Unknown]
  - Diarrhoea [Unknown]
  - Flatulence [Unknown]
  - Abdominal distension [Unknown]
  - Insurance issue [Unknown]

NARRATIVE: CASE EVENT DATE: 20220501
